FAERS Safety Report 8678564 (Version 2)
Quarter: 2013Q4

REPORT INFORMATION
  Report Type: Spontaneous
  Country: BR (occurrence: BR)
  Receive Date: 20120723
  Receipt Date: 20131031
  Transmission Date: 20140711
  Serious: No
  Sender: FDA-Public Use
  Company Number: BR-009507513-1205BRA00053

PATIENT
  Age: 55 Year
  Sex: Female
  Weight: 56 kg

DRUGS (3)
  1. EMEND [Suspect]
     Indication: VOMITING
     Dosage: UNK MG, UNK
     Route: 048
     Dates: start: 20120423, end: 20120628
  2. EMEND [Suspect]
     Indication: NAUSEA
     Dosage: UNK MG, UNK
     Route: 048
     Dates: start: 20120506
  3. ANTINEOPLASTIC (UNSPECIFIED) [Concomitant]

REACTIONS (3)
  - Vomiting [Not Recovered/Not Resolved]
  - Drug ineffective [Unknown]
  - Adenocarcinoma [Unknown]
